FAERS Safety Report 6882846-3 (Version None)
Quarter: 2010Q3

REPORT INFORMATION
  Report Type: 
  Country: None (occurrence: None)
  Receive Date: 20100702
  Receipt Date: 20090707
  Transmission Date: 20110219
  Serious: Yes (Other)
  Sender: FDA-Public Use
  Company Number: 2009217201

PATIENT
  Age: 49 Year
  Sex: Female

DRUGS (5)
  1. ZOLOFT [Suspect]
  2. KLONOPIB (CLONAZEPAM) [Concomitant]
  3. LUNESTA [Concomitant]
  4. ACYCLOVIR [Concomitant]
  5. NORDETTE (ETHINYLESTRAZOIL, LEVONORGESTREL) [Concomitant]

REACTIONS (1)
  - SEROTONIN SYNDROME [None]
